FAERS Safety Report 9132231 (Version 1)
Quarter: 2013Q1

REPORT INFORMATION
  Report Type: Spontaneous
  Country: US (occurrence: US)
  Receive Date: 20130107
  Receipt Date: 20130107
  Transmission Date: 20140127
  Serious: No
  Sender: FDA-Public Use
  Company Number: US-ASTRAZENECA-2012SE96269

PATIENT
  Age: 60 Year
  Sex: Male

DRUGS (13)
  1. CAPRELSA [Suspect]
     Route: 048
     Dates: start: 20121214
  2. ADVAIR [Concomitant]
  3. CARVEDILOL [Concomitant]
  4. CYMBALTA [Concomitant]
  5. DEXILANT [Concomitant]
  6. GABAPENTIN [Concomitant]
  7. LOMOTIL [Concomitant]
  8. MIRAPEX [Concomitant]
  9. MIRTAZAPINE [Concomitant]
  10. MOTRIN [Concomitant]
  11. SINGULAIR [Concomitant]
  12. TRAMADOL [Concomitant]
  13. ZANTAC [Concomitant]

REACTIONS (1)
  - Hot flush [Unknown]
